FAERS Safety Report 7457407-8 (Version None)
Quarter: 2011Q2

REPORT INFORMATION
  Report Type: 
  Country: None (occurrence: None)
  Receive Date: 20110504
  Receipt Date: 20110420
  Transmission Date: 20111010
  Serious: Yes (Other)
  Sender: FDA-Public Use
  Company Number: PHHY2011US35603

PATIENT
  Sex: Male

DRUGS (1)
  1. ZOMETA [Suspect]
     Indication: METASTASES TO BONE

REACTIONS (9)
  - WEIGHT DECREASED [None]
  - DISEASE PROGRESSION [None]
  - ASTHENIA [None]
  - BACK PAIN [None]
  - NEOPLASM MALIGNANT [None]
  - FATIGUE [None]
  - SKIN DISCOLOURATION [None]
  - DECREASED APPETITE [None]
  - DEPRESSED MOOD [None]
